FAERS Safety Report 10506597 (Version 1)
Quarter: 2014Q3

REPORT INFORMATION
  Report Type: Spontaneous
  Country: US (occurrence: None)
  Receive Date: 20140915
  Receipt Date: 20140915
  Transmission Date: 20150326
  Serious: Yes (Other)
  Sender: FDA-Public Use
  Company Number: 2014-US-000782

PATIENT
  Age: 72 Year
  Sex: Female

DRUGS (1)
  1. XYREM [Suspect]
     Active Substance: SODIUM OXYBATE
     Indication: FIBROMYALGIA
     Route: 048
     Dates: start: 200601, end: 2006

REACTIONS (3)
  - Head injury [None]
  - Dizziness [None]
  - Fall [None]

NARRATIVE: CASE EVENT DATE: 201401
